FAERS Safety Report 4763313-X (Version None)
Quarter: 2005Q3

REPORT INFORMATION
  Report Type: 
  Country: None (occurrence: None)
  Receive Date: 20050826
  Receipt Date: 20050315
  Transmission Date: 20060218
  Serious: Yes (Other)
  Sender: FDA-Public Use
  Company Number: USA-2003-0012148

PATIENT
  Age: 37 Year
  Sex: Male

DRUGS (18)
  1. OXYCONTIN [Suspect]
     Indication: PAIN
     Dosage: 30 MG, BID
  2. ELAVIL [Concomitant]
  3. CELEBREX [Concomitant]
  4. FLEXERIL [Concomitant]
  5. TYLENOL [Concomitant]
  6. ZANAFLEX [Concomitant]
  7. TEGRETOL [Concomitant]
  8. IMITREX [Concomitant]
  9. DURAGESIC-100 [Concomitant]
  10. NEURONTIN [Concomitant]
  11. VICODIN [Concomitant]
  12. ROBAXIN [Concomitant]
  13. ZOLOFT [Concomitant]
  14. TOPAMAX [Concomitant]
  15. DEPAKOTE [Concomitant]
  16. LEXAPRO [Concomitant]
  17. BENADRYL [Concomitant]
  18. ZOMIG [Concomitant]

REACTIONS (29)
  - ABDOMINAL PAIN [None]
  - AKINESIA [None]
  - ANXIETY [None]
  - ARTHRITIS [None]
  - BLOOD PRESSURE INCREASED [None]
  - BURNING SENSATION [None]
  - DEPRESSED MOOD [None]
  - DEPRESSION [None]
  - DIARRHOEA [None]
  - DRUG DEPENDENCE [None]
  - DRUG WITHDRAWAL SYNDROME [None]
  - DYSPEPSIA [None]
  - ECZEMA [None]
  - HYPOAESTHESIA [None]
  - INSOMNIA [None]
  - LIP PAIN [None]
  - MIGRAINE [None]
  - MYOFASCIAL PAIN SYNDROME [None]
  - NAUSEA [None]
  - PAIN [None]
  - PAIN IN EXTREMITY [None]
  - PARAESTHESIA [None]
  - PHONOPHOBIA [None]
  - PHOTOPHOBIA [None]
  - PYREXIA [None]
  - SOCIAL AVOIDANT BEHAVIOUR [None]
  - STRESS [None]
  - TENDERNESS [None]
  - VOMITING [None]
